FAERS Safety Report 7923632-2 (Version None)
Quarter: 2011Q4

REPORT INFORMATION
  Report Type: 
  Country: None (occurrence: None)
  Receive Date: 20111117
  Receipt Date: 20110207
  Transmission Date: 20120403
  Serious: No
  Sender: FDA-Public Use
  Company Number: US-AMGEN-USASP2011007383

PATIENT

DRUGS (1)
  1. ENBREL [Suspect]
     Indication: PSORIATIC ARTHROPATHY

REACTIONS (5)
  - PLATELET COUNT DECREASED [None]
  - PNEUMONIA [None]
  - INFECTION [None]
  - LIVER FUNCTION TEST ABNORMAL [None]
  - PSORIATIC ARTHROPATHY [None]
